FAERS Safety Report 10594305 (Version 3)
Quarter: 2015Q1

REPORT INFORMATION
  Report Type: Spontaneous
  Country: US (occurrence: US)
  Receive Date: 20141119
  Receipt Date: 20150210
  Transmission Date: 20150720
  Serious: No
  Sender: FDA-Public Use
  Company Number: US-009507513-1411USA007535

PATIENT
  Sex: Male

DRUGS (2)
  1. MIRALAX [Suspect]
     Active Substance: POLYETHYLENE GLYCOL 3350
     Indication: PRODUCT USED FOR UNKNOWN INDICATION
     Dosage: UNK, QOD
     Route: 048
     Dates: start: 201501
  2. MIRALAX [Suspect]
     Active Substance: POLYETHYLENE GLYCOL 3350
     Dosage: UNK
     Route: 048

REACTIONS (5)
  - Lacrimation increased [Recovered/Resolved]
  - Inappropriate schedule of drug administration [Unknown]
  - Drug prescribing error [Unknown]
  - Expired product administered [Unknown]
  - Dry eye [Unknown]

NARRATIVE: CASE EVENT DATE: 201501
